FAERS Safety Report 17879944 (Version 1)
Quarter: 2020Q2

REPORT INFORMATION
  Report Type: Spontaneous
  Country: GB (occurrence: GB)
  Receive Date: 20200610
  Receipt Date: 20200610
  Transmission Date: 20200714
  Serious: Yes (Hospitalization, Other)
  Sender: FDA-Public Use
  Company Number: GB-ACCORD-184909

PATIENT
  Age: 69 Year
  Sex: Male

DRUGS (4)
  1. WARFARIN [Concomitant]
     Active Substance: WARFARIN
     Indication: ATRIAL FIBRILLATION
  2. LITHIUM. [Interacting]
     Active Substance: LITHIUM
     Indication: BIPOLAR DISORDER
  3. FUROSEMIDE. [Suspect]
     Active Substance: FUROSEMIDE
     Indication: LYMPHOEDEMA
     Route: 048
  4. BISOPROLOL [Concomitant]
     Active Substance: BISOPROLOL

REACTIONS (4)
  - Fall [Unknown]
  - Drug interaction [Unknown]
  - Confusional state [Recovering/Resolving]
  - Toxicity to various agents [Recovering/Resolving]
